FAERS Safety Report 24706721 (Version 2)
Quarter: 2024Q4

REPORT INFORMATION
  Report Type: Report from Study
  Country: US (occurrence: US)
  Receive Date: 20241206
  Receipt Date: 20241228
  Transmission Date: 20250115
  Serious: Yes (Death)
  Sender: HLS THERAPEUTICS
  Company Number: US-HLS-202401794

PATIENT
  Age: 74 Year
  Sex: Male

DRUGS (1)
  1. CLOZARIL [Suspect]
     Active Substance: CLOZAPINE
     Indication: Product used for unknown indication
     Dosage: CLOZARIL 25MG DS 30 QTY 90 CLOZARIL 100MG DS 30 QTY 120
     Route: 065

REACTIONS (1)
  - Choking [Fatal]
